FAERS Safety Report 6795485-X (Version None)
Quarter: 2010Q2

REPORT INFORMATION
  Report Type: 
  Country: None (occurrence: None)
  Receive Date: 20100625
  Receipt Date: 20100622
  Transmission Date: 20101027
  Serious: Yes (Death, Life-Threatening, Hospitalization, Other)
  Sender: FDA-Public Use
  Company Number: PHHY2009CA15560

PATIENT
  Sex: Male

DRUGS (2)
  1. SANDOSTATIN LAR [Suspect]
     Indication: ACROMEGALY
     Dosage: 20 MG, QMO
     Route: 030
     Dates: start: 20080603, end: 20100309
  2. NOVAMOXIN [Concomitant]
     Dosage: 500 MG, TID
     Dates: start: 20090401

REACTIONS (9)
  - BLADDER CATHETERISATION [None]
  - DEATH [None]
  - METASTASES TO LYMPH NODES [None]
  - METASTASES TO NECK [None]
  - NECK MASS [None]
  - PITUITARY TUMOUR REMOVAL [None]
  - PLEURAL EFFUSION [None]
  - TOOTH EXTRACTION [None]
  - WEIGHT DECREASED [None]
